FAERS Safety Report 6062987-3 (Version None)
Quarter: 2009Q1

REPORT INFORMATION
  Report Type: 
  Country: None (occurrence: None)
  Receive Date: 20090203
  Receipt Date: 20090123
  Transmission Date: 20090719
  Serious: Yes (Hospitalization)
  Sender: FDA-Public Use
  Company Number: B0555794A

PATIENT
  Age: 66 Year
  Sex: Female

DRUGS (10)
  1. AUGMENTIN '125' [Suspect]
     Indication: LUNG INFECTION
     Route: 048
     Dates: start: 20080724, end: 20080728
  2. SERESTA [Concomitant]
     Dosage: 60UNIT PER DAY
     Route: 048
  3. TEMESTA [Concomitant]
     Route: 048
  4. NOCTRAN [Concomitant]
     Route: 048
  5. LYRICA [Concomitant]
     Route: 048
  6. MORPHINE SULFATE [Concomitant]
     Indication: PAIN
     Dosage: 20MG PER DAY
     Route: 048
  7. DISOPYRAMIDE [Concomitant]
     Indication: ARRHYTHMIA
     Dosage: 2UNIT PER DAY
     Route: 048
  8. NOLVADEX [Concomitant]
     Dosage: 1UNIT PER DAY
     Route: 048
  9. THERALENE [Concomitant]
     Dosage: 30DROP PER DAY
     Route: 048
  10. TAVANIC [Concomitant]
     Indication: LUNG INFECTION
     Route: 048

REACTIONS (4)
  - CHOLELITHIASIS [None]
  - CHOLESTASIS [None]
  - HEPATITIS [None]
  - HEPATOCELLULAR INJURY [None]
